FAERS Safety Report 5522293-X (Version None)
Quarter: 2007Q4

REPORT INFORMATION
  Report Type: 
  Country: None (occurrence: None)
  Receive Date: 20071120
  Receipt Date: 20071112
  Transmission Date: 20080405
  Serious: Yes (Hospitalization)
  Sender: FDA-Public Use
  Company Number: US-ELI_LILLY_AND_COMPANY-US200710005573

PATIENT
  Sex: Female

DRUGS (6)
  1. FORTEO [Suspect]
     Indication: OSTEOPOROSIS
     Dosage: UNK, UNK
     Dates: start: 20070301, end: 20071004
  2. FORTEO [Suspect]
     Dates: start: 20071112
  3. AMITRIPTYLINE [Concomitant]
     Dosage: 25 MG, UNK
  4. PRILOSEC [Concomitant]
     Dosage: 30 MG, UNK
  5. NEURONTIN [Concomitant]
     Dosage: 600 MG, UNK
  6. ANTIHYPERTENSIVES [Concomitant]

REACTIONS (3)
  - ABDOMINAL TENDERNESS [None]
  - INTESTINAL OBSTRUCTION [None]
  - VOMITING [None]
